FAERS Safety Report 6153367-0 (Version None)
Quarter: 2009Q2

REPORT INFORMATION
  Report Type: 
  Country: None (occurrence: None)
  Receive Date: 20090413
  Receipt Date: 20090403
  Transmission Date: 20091009
  Serious: Yes (Hospitalization, Other)
  Sender: FDA-Public Use
  Company Number: JP-PFIZER INC-2009181144

PATIENT

DRUGS (4)
  1. XALATAN [Suspect]
     Indication: GLAUCOMA
     Dosage: 2 GTT, 1X/DAY
     Dates: start: 20031023, end: 20080905
  2. XALATAN [Suspect]
     Indication: OCULAR HYPERTENSION
  3. TARIVID OPHTHALMIC [Concomitant]
     Route: 047
     Dates: start: 20040715, end: 20060817
  4. KARY UNI [Concomitant]
     Dosage: UNK
     Route: 047
     Dates: start: 20050209, end: 20051224

REACTIONS (5)
  - DIZZINESS POSTURAL [None]
  - HALLUCINATION [None]
  - HEPATITIS C [None]
  - PUNCTATE KERATITIS [None]
  - VISUAL ACUITY REDUCED [None]
